FAERS Safety Report 5572913-9 (Version None)
Quarter: 2007Q4

REPORT INFORMATION
  Report Type: 
  Country: None (occurrence: None)
  Receive Date: 20071219
  Receipt Date: 20071219
  Transmission Date: 20080405
  Serious: No
  Sender: FDA-Public Use
  Company Number: None

PATIENT
  Age: 26 Year
  Sex: Male
  Weight: 90.7194 kg

DRUGS (6)
  1. BUPROPION HCL [Suspect]
     Dosage: 150MG  BID  PO
     Route: 048
     Dates: start: 20070702, end: 20070726
  2. DISULFIRAM [Concomitant]
  3. DIAZEPAM [Concomitant]
  4. FIBERLAX [Concomitant]
  5. SERTRALINE [Concomitant]
  6. OLANZAPINE [Concomitant]

REACTIONS (4)
  - AKATHISIA [None]
  - INSOMNIA [None]
  - IRRITABILITY [None]
  - LIBIDO INCREASED [None]
